FAERS Safety Report 18202212 (Version 1)
Quarter: 2020Q3

REPORT INFORMATION
  Report Type: Report from Study
  Country: CA (occurrence: CA)
  Receive Date: 20200827
  Receipt Date: 20200827
  Transmission Date: 20201103
  Serious: Yes (Other)
  Sender: FDA-Public Use
  Company Number: CA-BIOGEN-2020BI00914080

PATIENT
  Sex: Female

DRUGS (1)
  1. TECFIDERA [Suspect]
     Active Substance: DIMETHYL FUMARATE
     Indication: MULTIPLE SCLEROSIS
     Dosage: MAINTENANCE DOSE
     Route: 065
     Dates: start: 20140106

REACTIONS (5)
  - Magnetic resonance imaging abnormal [Unknown]
  - Deafness bilateral [Unknown]
  - Multiple sclerosis relapse [Unknown]
  - Hyperthyroidism [Unknown]
  - Influenza [Unknown]

NARRATIVE: CASE EVENT DATE: 2019
